FAERS Safety Report 8508522 (Version 2)
Quarter: 2015Q2

REPORT INFORMATION
  Report Type: Spontaneous
  Country: US (occurrence: US)
  Receive Date: 20120412
  Receipt Date: 20150417
  Transmission Date: 20150821
  Serious: No
  Sender: FDA-Public Use
  Company Number: US-ASTRAZENECA-2011SE18483

PATIENT
  Age: 789 Month
  Sex: Female
  Weight: 81.2 kg

DRUGS (3)
  1. LISINOPRIL-HYDROCHLOROTHIAZIDE [Suspect]
     Active Substance: HYDROCHLOROTHIAZIDE\LISINOPRIL
     Indication: BLOOD PRESSURE ABNORMAL
     Dosage: 20MG/12.5MG; DAILY
     Route: 048
     Dates: start: 2000
  2. LISINOPRIL. [Concomitant]
     Active Substance: LISINOPRIL
     Route: 048
  3. NEXIUM [Suspect]
     Active Substance: ESOMEPRAZOLE MAGNESIUM
     Indication: GASTROOESOPHAGEAL REFLUX DISEASE
     Route: 048
     Dates: start: 200103, end: 201502

REACTIONS (10)
  - Pain [Unknown]
  - Oesophageal pain [Unknown]
  - Dysphagia [Unknown]
  - Malaise [Unknown]
  - Eating disorder [Unknown]
  - Condition aggravated [Unknown]
  - Drug dependence [Unknown]
  - Wrong patient received medication [Unknown]
  - Drug dose omission [Unknown]
  - Gastrooesophageal reflux disease [Unknown]

NARRATIVE: CASE EVENT DATE: 201502
